FAERS Safety Report 4816088-X (Version None)
Quarter: 2005Q4

REPORT INFORMATION
  Report Type: 
  Country: None (occurrence: None)
  Receive Date: 20051031
  Receipt Date: 20051020
  Transmission Date: 20060501
  Serious: Yes (Other)
  Sender: FDA-Public Use
  Company Number: US-BRISTOL-MYERS SQUIBB COMPANY-13153671

PATIENT
  Age: 77 Year
  Sex: Female

DRUGS (1)
  1. CARDIOLITE [Suspect]
     Indication: CARDIAC STRESS TEST
     Dates: start: 20050930, end: 20050930

REACTIONS (6)
  - DYSARTHRIA [None]
  - EYELID PTOSIS [None]
  - FEELING ABNORMAL [None]
  - HEADACHE [None]
  - HYPERTENSION [None]
  - LETHARGY [None]
